FAERS Safety Report 5843666-1 (Version None)
Quarter: 2008Q3

REPORT INFORMATION
  Report Type: 
  Country: None (occurrence: None)
  Receive Date: 20080812
  Receipt Date: 20080812
  Transmission Date: 20090109
  Serious: No
  Sender: FDA-Public Use
  Company Number: None

PATIENT
  Age: 69 Year
  Sex: Female
  Weight: 85.2762 kg

DRUGS (3)
  1. METOPROLOL 50 MG AUROBINDO [Suspect]
     Indication: ANGINA PECTORIS
     Dosage: 50 MG 2 X'S DAILY PO, 3 1/2 YEARS
     Route: 048
     Dates: start: 20050412, end: 20080811
  2. METOPROLOL 50 MG AUROBINDO [Suspect]
     Indication: HYPERTENSION
     Dosage: 50 MG 2 X'S DAILY PO, 3 1/2 YEARS
     Route: 048
     Dates: start: 20050412, end: 20080811
  3. METOPROLOL 50 MG AUROBINDO [Suspect]
     Indication: VENTRICULAR FIBRILLATION
     Dosage: 50 MG 2 X'S DAILY PO, 3 1/2 YEARS
     Route: 048
     Dates: start: 20050412, end: 20080811

REACTIONS (1)
  - NAUSEA [None]
